FAERS Safety Report 10103852 (Version 2)
Quarter: 2014Q2

REPORT INFORMATION
  Report Type: Spontaneous
  Country: IT (occurrence: IT)
  Receive Date: 20140424
  Receipt Date: 20140424
  Transmission Date: 20141212
  Serious: Yes (Hospitalization)
  Sender: FDA-Public Use
  Company Number: IT-ABBVIE-13X-083-1109938-00

PATIENT
  Age: 46 Year
  Sex: Female

DRUGS (5)
  1. KLACID [Suspect]
     Indication: ARTHROPOD BITE
     Route: 048
     Dates: start: 20130416, end: 20130422
  2. CHIMONO [Suspect]
     Indication: CYSTITIS
     Dates: start: 20130411, end: 20130415
  3. OKI [Concomitant]
     Indication: PRODUCT USED FOR UNKNOWN INDICATION
     Dates: start: 201303
  4. LENICYST [Concomitant]
     Indication: CYSTITIS
     Dates: start: 201304
  5. DIETARY SUPPLEMENT- RUBIS SACHET [Concomitant]
     Indication: CYSTITIS
     Dates: start: 201304

REACTIONS (4)
  - Erythema [Recovered/Resolved]
  - Lip oedema [Recovered/Resolved]
  - Periorbital oedema [Recovered/Resolved]
  - Pruritus [Recovered/Resolved]
